FAERS Safety Report 25645753 (Version 1)
Quarter: 2025Q3

REPORT INFORMATION
  Report Type: Spontaneous
  Country: EU (occurrence: EU)
  Receive Date: 20250805
  Receipt Date: 20250805
  Transmission Date: 20251020
  Serious: Yes (Hospitalization, Disabling, Other)
  Sender: Alora Pharma
  Company Number: EU-VERTICAL PHARMACEUTICALS-2025ALO02392

PATIENT
  Age: 55 Year
  Sex: Female

DRUGS (45)
  1. ESTRADIOL [Suspect]
     Active Substance: ESTRADIOL
     Indication: Product used for unknown indication
     Dates: start: 2009
  2. NOMEGESTROL ACETATE [Suspect]
     Active Substance: NOMEGESTROL ACETATE
     Indication: Product used for unknown indication
     Dates: start: 20160601
  3. NOMEGESTROL ACETATE [Suspect]
     Active Substance: NOMEGESTROL ACETATE
     Dates: start: 20141020
  4. NOMEGESTROL ACETATE [Suspect]
     Active Substance: NOMEGESTROL ACETATE
     Dates: start: 20160419
  5. NOMEGESTROL ACETATE [Suspect]
     Active Substance: NOMEGESTROL ACETATE
     Dates: start: 20130103
  6. NOMEGESTROL ACETATE [Suspect]
     Active Substance: NOMEGESTROL ACETATE
     Dates: start: 20160805
  7. NOMEGESTROL ACETATE [Suspect]
     Active Substance: NOMEGESTROL ACETATE
     Dates: start: 20160315
  8. NOMEGESTROL ACETATE [Suspect]
     Active Substance: NOMEGESTROL ACETATE
     Dates: start: 20160928
  9. NOMEGESTROL ACETATE [Suspect]
     Active Substance: NOMEGESTROL ACETATE
     Dosage: STRENGTH: 5 MG (5 MG,1 D)
     Dates: start: 20160412
  10. AZELASTINE HYDROCHLORIDE [Suspect]
     Active Substance: AZELASTINE HYDROCHLORIDE
     Indication: Product used for unknown indication
  11. GESTODENE [Suspect]
     Active Substance: GESTODENE
     Indication: Product used for unknown indication
     Dates: start: 20060801
  12. GESTODENE [Suspect]
     Active Substance: GESTODENE
     Dates: start: 20160801
  13. ETHINYL ESTRADIOL [Suspect]
     Active Substance: ETHINYL ESTRADIOL
     Indication: Product used for unknown indication
     Dates: start: 20060801
  14. ETHINYL ESTRADIOL [Suspect]
     Active Substance: ETHINYL ESTRADIOL
     Dates: end: 20060801
  15. ESTRADIOL [Suspect]
     Active Substance: ESTRADIOL
     Indication: Product used for unknown indication
     Dates: start: 2008
  16. CYPROTERONE ACETATE [Suspect]
     Active Substance: CYPROTERONE ACETATE
     Indication: Product used for unknown indication
     Dates: start: 20090421
  17. CYPROTERONE ACETATE [Suspect]
     Active Substance: CYPROTERONE ACETATE
     Dates: start: 20090424, end: 200910
  18. CYPROTERONE ACETATE [Suspect]
     Active Substance: CYPROTERONE ACETATE
     Dates: start: 20091222
  19. CYPROTERONE ACETATE [Suspect]
     Active Substance: CYPROTERONE ACETATE
     Dates: start: 20100330
  20. NOMEGESTROL ACETATE [Suspect]
     Active Substance: NOMEGESTROL ACETATE
     Indication: Product used for unknown indication
     Dates: start: 20060801
  21. NOMEGESTROL ACETATE [Suspect]
     Active Substance: NOMEGESTROL ACETATE
     Dates: start: 20151020
  22. NOMEGESTROL ACETATE [Suspect]
     Active Substance: NOMEGESTROL ACETATE
     Dates: start: 20151020, end: 20160927
  23. CHLORMADINONE [Suspect]
     Active Substance: CHLORMADINONE
     Indication: Product used for unknown indication
     Dates: start: 200306, end: 200306
  24. CYPROTERONE [Suspect]
     Active Substance: CYPROTERONE
     Indication: Product used for unknown indication
     Dates: start: 20040621
  25. CYPROTERONE [Suspect]
     Active Substance: CYPROTERONE
     Dates: start: 20050208
  26. ETHINYL ESTRADIOL\GESTODENE [Suspect]
     Active Substance: ETHINYL ESTRADIOL\GESTODENE
     Indication: Product used for unknown indication
     Dates: start: 20250628
  27. CHLORMADINONE ACETATE [Suspect]
     Active Substance: CHLORMADINONE ACETATE
     Dates: start: 200306, end: 201604
  28. ETHINYL ESTRADIOL\GESTODENE [Suspect]
     Active Substance: ETHINYL ESTRADIOL\GESTODENE
     Dates: start: 20051213
  29. ETHINYL ESTRADIOL\GESTODENE [Suspect]
     Active Substance: ETHINYL ESTRADIOL\GESTODENE
     Dates: start: 20060921
  30. ETHINYL ESTRADIOL\GESTODENE [Suspect]
     Active Substance: ETHINYL ESTRADIOL\GESTODENE
     Dates: start: 20060904
  31. NOMEGESTROL ACETATE [Suspect]
     Active Substance: NOMEGESTROL ACETATE
     Dates: start: 20050801
  32. ETHINYL ESTRADIOL\GESTODENE [Suspect]
     Active Substance: ETHINYL ESTRADIOL\GESTODENE
     Indication: Product used for unknown indication
     Dates: start: 20060801
  33. NOMEGESTROL ACETATE [Suspect]
     Active Substance: NOMEGESTROL ACETATE
     Indication: Product used for unknown indication
     Dates: start: 20050801
  34. NOMEGESTROL ACETATE [Suspect]
     Active Substance: NOMEGESTROL ACETATE
     Dates: start: 20100330
  35. NOMEGESTROL ACETATE [Suspect]
     Active Substance: NOMEGESTROL ACETATE
     Dates: start: 20110214
  36. NOMEGESTROL ACETATE [Suspect]
     Active Substance: NOMEGESTROL ACETATE
     Dates: start: 20110301
  37. NOMEGESTROL ACETATE [Suspect]
     Active Substance: NOMEGESTROL ACETATE
     Dates: start: 20070213
  38. NOMEGESTROL ACETATE [Suspect]
     Active Substance: NOMEGESTROL ACETATE
     Dates: start: 20040310
  39. NOMEGESTROL ACETATE [Suspect]
     Active Substance: NOMEGESTROL ACETATE
     Dates: start: 20091002
  40. NOMEGESTROL ACETATE [Suspect]
     Active Substance: NOMEGESTROL ACETATE
     Dates: start: 20050208
  41. NOMEGESTROL ACETATE [Suspect]
     Active Substance: NOMEGESTROL ACETATE
     Dates: start: 20120412
  42. NOMEGESTROL ACETATE [Suspect]
     Active Substance: NOMEGESTROL ACETATE
     Dates: start: 20080626
  43. NOMEGESTROL ACETATE [Suspect]
     Active Substance: NOMEGESTROL ACETATE
     Dates: start: 20111103
  44. NOMEGESTROL ACETATE [Suspect]
     Active Substance: NOMEGESTROL ACETATE
     Dates: start: 20130613
  45. NOMEGESTROL [Concomitant]
     Active Substance: NOMEGESTROL
     Dates: start: 20121214

REACTIONS (36)
  - Meningioma [Unknown]
  - Deafness [Unknown]
  - Dysdiadochokinesis [Unknown]
  - Sensory disturbance [Unknown]
  - Gait disturbance [Unknown]
  - Migraine [Unknown]
  - Ear canal injury [Unknown]
  - Scar pain [Unknown]
  - Tinnitus [Recovered/Resolved]
  - Fall [Unknown]
  - Condition aggravated [Unknown]
  - Disturbance in attention [Unknown]
  - Ear pain [Unknown]
  - Disability [Not Recovered/Not Resolved]
  - Neck pain [Unknown]
  - Meniere^s disease [Unknown]
  - Anterograde amnesia [Unknown]
  - Balance disorder [Unknown]
  - Torticollis [Unknown]
  - Vestibular disorder [Unknown]
  - Retrograde amnesia [Unknown]
  - Narcolepsy [Unknown]
  - Hypoacusis [Unknown]
  - Hypogeusia [Unknown]
  - Alopecia [Unknown]
  - Dizziness [Recovered/Resolved]
  - Temporomandibular pain and dysfunction syndrome [Unknown]
  - Parosmia [Unknown]
  - Romberg test positive [Unknown]
  - Impaired quality of life [Unknown]
  - Feeling abnormal [Recovered/Resolved]
  - Weight increased [Unknown]
  - Phonophobia [Unknown]
  - Psychomotor retardation [Unknown]
  - Claustrophobia [Unknown]
  - Nausea [Unknown]

NARRATIVE: CASE EVENT DATE: 20150401
